FAERS Safety Report 15012988 (Version 5)
Quarter: 2018Q3

REPORT INFORMATION
  Report Type: Spontaneous
  Country: RO (occurrence: RO)
  Receive Date: 20180614
  Receipt Date: 20180823
  Transmission Date: 20181010
  Serious: Yes (Life-Threatening, Hospitalization, Other)
  Sender: FDA-Public Use
  Company Number: RO-ELI_LILLY_AND_COMPANY-RO201806005055

PATIENT
  Age: 51 Year
  Sex: Female
  Weight: 53 kg

DRUGS (6)
  1. DULOXETINE HYDROCHLORIDE. [Suspect]
     Active Substance: DULOXETINE HYDROCHLORIDE
     Indication: DEPRESSION
     Dosage: UNK UNK, UNKNOWN
     Route: 065
     Dates: start: 20120130, end: 20180528
  2. GABAPENTIN. [Concomitant]
     Active Substance: GABAPENTIN
     Indication: POLYNEUROPATHY
  3. METHYLPREDNISOLONE. [Concomitant]
     Active Substance: METHYLPREDNISOLONE
     Indication: RHEUMATOID ARTHRITIS
  4. LEFLUNOMIDE. [Concomitant]
     Active Substance: LEFLUNOMIDE
     Indication: RHEUMATOID ARTHRITIS
  5. ATORVASTATIN [Concomitant]
     Active Substance: ATORVASTATIN
     Indication: HYPERCHOLESTEROLAEMIA
  6. PRAMIPEXOLE. [Concomitant]
     Active Substance: PRAMIPEXOLE
     Indication: POLYNEUROPATHY

REACTIONS (9)
  - Sinusitis [Unknown]
  - Suicide attempt [Recovered/Resolved]
  - Mixed anxiety and depressive disorder [Unknown]
  - Acute stress disorder [Recovered/Resolved]
  - Coma [Recovering/Resolving]
  - Intentional overdose [Recovering/Resolving]
  - Anaemia [Unknown]
  - Psychological trauma [Recovering/Resolving]
  - Abnormal behaviour [Unknown]

NARRATIVE: CASE EVENT DATE: 20180104
